FAERS Safety Report 8913448 (Version 3)
Quarter: 2013Q1

REPORT INFORMATION
  Report Type: Report from Study
  Country: CA (occurrence: CA)
  Receive Date: 20121119
  Receipt Date: 20130322
  Transmission Date: 20140127
  Serious: Yes (Other)
  Sender: FDA-Public Use
  Company Number: CA-JNJFOC-20121105161

PATIENT
  Age: 34 Year
  Sex: Male
  Weight: 112 kg

DRUGS (8)
  1. REMICADE [Suspect]
     Indication: CROHN^S DISEASE
     Route: 042
     Dates: start: 20120821
  2. REMICADE [Suspect]
     Indication: CROHN^S DISEASE
     Route: 042
     Dates: start: 20100830
  3. IMURAN [Concomitant]
     Dosage: 4 TABLETS
     Route: 065
  4. ATIVAN [Concomitant]
     Route: 065
  5. CHOLESTYRAMINE [Concomitant]
     Route: 065
  6. OXAZEPAM [Concomitant]
     Indication: SLEEP DISORDER THERAPY
     Dosage: HOUR OF SLEEP
     Route: 065
  7. DILAUDID [Concomitant]
     Dosage: PRN
     Route: 065
  8. GABAPENTIN [Concomitant]
     Indication: PAIN
     Route: 065

REACTIONS (7)
  - Scar [Unknown]
  - Fistula [Unknown]
  - Abscess intestinal [Not Recovered/Not Resolved]
  - Hernia [Not Recovered/Not Resolved]
  - Pyrexia [Recovered/Resolved]
  - Nausea [Recovered/Resolved]
  - Pain [Recovered/Resolved]
